FAERS Safety Report 6663412-1 (Version None)
Quarter: 2010Q2

REPORT INFORMATION
  Report Type: 
  Country: None (occurrence: None)
  Receive Date: 20100401
  Receipt Date: 20100324
  Transmission Date: 20101027
  Serious: Yes (Hospitalization, Other)
  Sender: FDA-Public Use
  Company Number: FR-AMGEN-KDL399753

PATIENT
  Sex: Female
  Weight: 50 kg

DRUGS (5)
  1. VECTIBIX [Suspect]
     Indication: COLORECTAL CANCER
     Route: 042
     Dates: start: 20091022, end: 20100225
  2. SINTROM [Concomitant]
     Route: 048
     Dates: start: 20090301
  3. EUPANTOL [Concomitant]
     Route: 048
  4. CYMBALTA [Concomitant]
     Route: 048
  5. TEMERIT [Concomitant]
     Route: 048

REACTIONS (3)
  - DRY SKIN [None]
  - ECZEMA [None]
  - ULCERATIVE KERATITIS [None]
